FAERS Safety Report 12520774 (Version 1)
Quarter: 2016Q3

REPORT INFORMATION
  Report Type: Spontaneous
  Country: US (occurrence: US)
  Receive Date: 20160701
  Receipt Date: 20160701
  Transmission Date: 20161109
  Serious: No
  Sender: FDA-Public Use
  Company Number: US-BAYER-2016-122104

PATIENT
  Age: 14 Year
  Sex: Male
  Weight: 77.98 kg

DRUGS (2)
  1. ALEVE [Suspect]
     Active Substance: NAPROXEN SODIUM
     Indication: EAR PAIN
     Dosage: 2 DF, ONCE
     Route: 048
  2. CIPRODEX [Concomitant]
     Active Substance: CIPROFLOXACIN HYDROCHLORIDE\DEXAMETHASONE
     Dosage: UNK

REACTIONS (2)
  - Drug effect incomplete [None]
  - Product use issue [Unknown]

NARRATIVE: CASE EVENT DATE: 20160616
